FAERS Safety Report 10849784 (Version 1)
Quarter: 2015Q1

REPORT INFORMATION
  Report Type: Spontaneous
  Country: US (occurrence: US)
  Receive Date: 20150221
  Receipt Date: 20150221
  Transmission Date: 20150721
  Serious: No
  Sender: FDA-Public Use
  Company Number: US-CELGENEUS-163-21880-14060558

PATIENT
  Sex: Male
  Weight: 88.53 kg

DRUGS (2)
  1. ASPIRIN. [Concomitant]
     Active Substance: ASPIRIN
     Indication: PRODUCT USED FOR UNKNOWN INDICATION
     Route: 065
  2. REVLIMID [Suspect]
     Active Substance: LENALIDOMIDE
     Indication: PLASMA CELL MYELOMA
     Dosage: 10 MILLIGRAM
     Route: 048
     Dates: start: 20130325

REACTIONS (5)
  - Nasal congestion [Unknown]
  - Skin abrasion [Unknown]
  - Dermatitis [Unknown]
  - Fall [Unknown]
  - Skin swelling [Unknown]

NARRATIVE: CASE EVENT DATE: 2014
